FAERS Safety Report 12860792 (Version 1)
Quarter: 2016Q4

REPORT INFORMATION
  Report Type: Spontaneous
  Country: US (occurrence: US)
  Receive Date: 20161019
  Receipt Date: 20161019
  Transmission Date: 20170207
  Serious: Yes (Other)
  Sender: FDA-Public Use
  Company Number: US-BAYER-2016-196698

PATIENT

DRUGS (3)
  1. ALEVE [Suspect]
     Active Substance: NAPROXEN SODIUM
     Dosage: 1 DF, QD  (WEDNESDAY 1, THURSDAY A.M. 1, THURSDAY P.M. 1, FRIDAY A.M. 1)
     Dates: start: 201010
  2. ALEVE [Suspect]
     Active Substance: NAPROXEN SODIUM
     Dosage: 2 DF, QD (WEDNESDAY, THURSDAY A.M. 1, THURSDAY P.M. 1, FRIDAY A.M. 1)
     Dates: start: 201010
  3. ALEVE [Suspect]
     Active Substance: NAPROXEN SODIUM
     Dosage: 1 DF, QD  (WEDNESDAY 1, THURSDAY A.M. 1, THURSDAY P.M. 1, FRIDAY A.M. 1)
     Dates: start: 201010

REACTIONS (8)
  - Pruritus [Unknown]
  - Renal disorder [Unknown]
  - Scar [Unknown]
  - Hypoaesthesia [Unknown]
  - Cardiac disorder [Unknown]
  - Blister [Unknown]
  - Muscle twitching [Unknown]
  - Liver disorder [Unknown]

NARRATIVE: CASE EVENT DATE: 201010
